FAERS Safety Report 4787246-8 (Version None)
Quarter: 2005Q4

REPORT INFORMATION
  Report Type: 
  Country: None (occurrence: None)
  Receive Date: 20051004
  Receipt Date: 20050727
  Transmission Date: 20060501
  Serious: Yes (Other)
  Sender: FDA-Public Use
  Company Number: PHBS2005JP11078

PATIENT
  Age: 77 Year
  Sex: Female

DRUGS (7)
  1. LOCHOL [Suspect]
     Dosage: 20 MG/DAY
     Route: 048
  2. CLARITHROMYCIN [Suspect]
     Indication: RHINITIS ALLERGIC
     Dosage: 400 MG/DAY
     Route: 048
     Dates: start: 20050630, end: 20050630
  3. ASPIRIN [Concomitant]
     Dosage: 81 MG/DAY
     Route: 048
  4. PANALDINE [Concomitant]
     Dosage: 100 MG/DAY
     Route: 048
  5. EMPYNASE P [Concomitant]
     Indication: RHINITIS ALLERGIC
     Dosage: 2 DF/DAY
     Route: 048
  6. OSPOLOT [Concomitant]
     Route: 048
  7. YODEL [Concomitant]
     Dosage: 3 DF/DAY
     Route: 048

REACTIONS (5)
  - BLOOD PRESSURE DECREASED [None]
  - DIZZINESS [None]
  - DRUG INTERACTION [None]
  - MALAISE [None]
  - SHOCK [None]
